FAERS Safety Report 11943870 (Version 1)
Quarter: 2016Q1

REPORT INFORMATION
  Report Type: Spontaneous
  Country: US (occurrence: US)
  Receive Date: 20160125
  Receipt Date: 20160125
  Transmission Date: 20160526
  Serious: No
  Sender: FDA-Public Use
  Company Number: US-UNITED THERAPEUTICS-UNT-2015-013903

PATIENT
  Age: 58 Year
  Sex: Female
  Weight: 161.95 kg

DRUGS (4)
  1. REMODULIN [Suspect]
     Active Substance: TREPROSTINIL
     Indication: PULMONARY ARTERIAL HYPERTENSION
     Dosage: 0.005 ?G/KG, CONTINUING
     Route: 041
     Dates: start: 201510
  2. REVATIO [Concomitant]
     Active Substance: SILDENAFIL CITRATE
     Indication: PRODUCT USED FOR UNKNOWN INDICATION
  3. REMODULIN [Suspect]
     Active Substance: TREPROSTINIL
     Dosage: 0.013 ?G/KG,CONTINUING
     Route: 041
     Dates: start: 20151110
  4. REMODULIN [Suspect]
     Active Substance: TREPROSTINIL
     Dosage: 0.013 ?G/KG /MIN,CONTINUING
     Route: 041
     Dates: start: 20151110

REACTIONS (6)
  - Weight increased [Unknown]
  - Pain in extremity [Unknown]
  - Restless legs syndrome [Unknown]
  - Diarrhoea [Unknown]
  - Pain in jaw [Unknown]
  - Insomnia [Unknown]

NARRATIVE: CASE EVENT DATE: 20151030
